FAERS Safety Report 25760790 (Version 1)
Quarter: 2025Q3

REPORT INFORMATION
  Report Type: Spontaneous
  Country: JP (occurrence: JP)
  Receive Date: 20250904
  Receipt Date: 20250904
  Transmission Date: 20251020
  Serious: Yes (Life-Threatening, Hospitalization, Other)
  Sender: PFIZER
  Company Number: JP-PFIZER INC-PV202500106585

PATIENT
  Age: 39 Year
  Sex: Male

DRUGS (22)
  1. MEROPENEM [Suspect]
     Active Substance: MEROPENEM
     Indication: Evidence based treatment
     Dosage: 1 G Q8H
  2. MEROPENEM [Suspect]
     Active Substance: MEROPENEM
     Indication: Septic shock
     Dosage: 0.5 G Q24H
  3. MEROPENEM [Suspect]
     Active Substance: MEROPENEM
     Indication: Purpura fulminans
  4. MEROPENEM [Suspect]
     Active Substance: MEROPENEM
     Indication: Pneumococcal infection
  5. VASOPRESSIN [Suspect]
     Active Substance: VASOPRESSIN
     Indication: Septic shock
  6. VASOPRESSIN [Suspect]
     Active Substance: VASOPRESSIN
     Indication: Pneumococcal infection
  7. VASOPRESSIN [Suspect]
     Active Substance: VASOPRESSIN
     Indication: Purpura fulminans
  8. METHYLPREDNISOLONE [Suspect]
     Active Substance: METHYLPREDNISOLONE
     Indication: Septic shock
     Dosage: 125 MG, DAILY
  9. METHYLPREDNISOLONE [Suspect]
     Active Substance: METHYLPREDNISOLONE
     Indication: Purpura fulminans
  10. METHYLPREDNISOLONE [Suspect]
     Active Substance: METHYLPREDNISOLONE
     Indication: Pneumococcal infection
  11. NOREPINEPHRINE [Suspect]
     Active Substance: NOREPINEPHRINE
     Indication: Septic shock
  12. NOREPINEPHRINE [Suspect]
     Active Substance: NOREPINEPHRINE
     Indication: Purpura fulminans
  13. NOREPINEPHRINE [Suspect]
     Active Substance: NOREPINEPHRINE
     Indication: Pneumococcal infection
  14. EPINEPHRINE [Suspect]
     Active Substance: EPINEPHRINE
     Indication: Septic shock
  15. EPINEPHRINE [Suspect]
     Active Substance: EPINEPHRINE
     Indication: Purpura fulminans
  16. EPINEPHRINE [Suspect]
     Active Substance: EPINEPHRINE
     Indication: Pneumococcal infection
  17. CEFTRIAXONE [Suspect]
     Active Substance: CEFTRIAXONE
     Indication: Pneumococcal infection
     Dosage: 2 G EVERY 12 HOURS, UNTIL DAY 10
  18. CEFTRIAXONE [Suspect]
     Active Substance: CEFTRIAXONE
     Indication: Purpura fulminans
  19. DAPTOMYCIN [Suspect]
     Active Substance: DAPTOMYCIN
     Indication: Purpura fulminans
     Dosage: 350 MG Q24H
  20. DAPTOMYCIN [Suspect]
     Active Substance: DAPTOMYCIN
     Indication: Pneumococcal infection
  21. MICAFUNGIN [Suspect]
     Active Substance: MICAFUNGIN SODIUM
     Indication: Purpura fulminans
     Dosage: 100 MG Q24H
  22. MICAFUNGIN [Suspect]
     Active Substance: MICAFUNGIN SODIUM
     Indication: Pneumococcal infection

REACTIONS (2)
  - Drug ineffective [Unknown]
  - Off label use [Unknown]
